FAERS Safety Report 9956532 (Version 2)
Quarter: 2014Q1

REPORT INFORMATION
  Report Type: Report from Study
  Country: US (occurrence: US)
  Receive Date: 20140304
  Receipt Date: 20140304
  Transmission Date: 20141002
  Serious: No
  Sender: FDA-Public Use
  Company Number: US-ABBVIE-13P-163-1084843-00

PATIENT
  Age: 62 Year
  Sex: Female

DRUGS (12)
  1. HUMIRA [Suspect]
     Indication: CROHN^S DISEASE
     Dates: start: 2008
  2. DILANTIN [Concomitant]
     Indication: EPILEPSY
  3. DEPAKOTE [Concomitant]
     Indication: EPILEPSY
  4. FOLIC ACID [Concomitant]
     Indication: IMMUNE SYSTEM DISORDER
  5. VITAMIN E [Concomitant]
     Indication: IMMUNE SYSTEM DISORDER
  6. VITAMIN C [Concomitant]
     Indication: IMMUNE SYSTEM DISORDER
  7. VITAMIN D NOS [Concomitant]
     Indication: IMMUNE SYSTEM DISORDER
  8. FISH OIL [Concomitant]
     Indication: IMMUNE SYSTEM DISORDER
  9. PROBIOTICS [Concomitant]
     Indication: PRODUCT USED FOR UNKNOWN INDICATION
  10. CALCIUM [Concomitant]
     Indication: PRODUCT USED FOR UNKNOWN INDICATION
  11. CHERRY EXTRACT [Concomitant]
     Indication: PRODUCT USED FOR UNKNOWN INDICATION
  12. MELATONIN [Concomitant]
     Indication: PRODUCT USED FOR UNKNOWN INDICATION

REACTIONS (12)
  - Concussion [Not Recovered/Not Resolved]
  - Road traffic accident [Unknown]
  - Mass [Not Recovered/Not Resolved]
  - Visual impairment [Not Recovered/Not Resolved]
  - Mobility decreased [Unknown]
  - Thinking abnormal [Unknown]
  - Feeling abnormal [Unknown]
  - Tremor [Unknown]
  - Dyskinesia [Unknown]
  - Hypoaesthesia [Unknown]
  - Myalgia [Unknown]
  - Memory impairment [Not Recovered/Not Resolved]
